FAERS Safety Report 4284111-X (Version None)
Quarter: 2004Q1

REPORT INFORMATION
  Report Type: 
  Country: None (occurrence: None)
  Receive Date: 20040130
  Receipt Date: 20040120
  Transmission Date: 20041129
  Serious: Yes (Hospitalization, Other)
  Sender: FDA-Public Use
  Company Number: 2003-10-2448

PATIENT
  Age: 15 Year
  Sex: Female

DRUGS (7)
  1. PEG-INTRON [Suspect]
     Indication: HEPATITIS C
     Dosage: 100 MCG QWK SUBCUTANEOUS
     Route: 058
     Dates: start: 20030930
  2. RIBAVIRIN [Suspect]
     Indication: HEPATITIS C
     Dosage: 1000 MG QD ORAL
     Route: 048
     Dates: start: 20030930
  3. TRACROLIMUS [Suspect]
     Indication: LIVER TRANSPLANT
     Dosage: 2-0.5* MG BID
     Dates: start: 20031006
  4. PREDNISONE [Concomitant]
  5. CATAPRES [Concomitant]
  6. URSO [Concomitant]
  7. VITAMIN D [Concomitant]

REACTIONS (14)
  - ABDOMINAL PAIN [None]
  - CHOLESTASIS [None]
  - DRUG INTERACTION [None]
  - DRUG LEVEL INCREASED [None]
  - HEPATITIS CHOLESTATIC [None]
  - HYPERGLYCAEMIA [None]
  - HYPOTENSION [None]
  - MALAISE [None]
  - OLIGURIA [None]
  - RASH GENERALISED [None]
  - STAPHYLOCOCCAL INFECTION [None]
  - THROMBOCYTOPENIA [None]
  - TOXIC SHOCK SYNDROME [None]
  - TREATMENT NONCOMPLIANCE [None]
